FAERS Safety Report 24105391 (Version 1)
Quarter: 2024Q3

REPORT INFORMATION
  Report Type: Spontaneous
  Country: US (occurrence: None)
  Receive Date: 20240717
  Receipt Date: 20240717
  Transmission Date: 20241017
  Serious: Yes (Life-Threatening, Hospitalization, Other)
  Sender: INFORLIFE
  Company Number: US-INFO-20240197

PATIENT
  Age: 74 Year
  Sex: Female

DRUGS (22)
  1. HEPARIN [Concomitant]
     Active Substance: HEPARIN SODIUM
  2. ACETAMINOPHEN AND CODEINE [Suspect]
     Active Substance: ACETAMINOPHEN\CODEINE PHOSPHATE
     Dosage: 15-300 MG AS NEEDED () ; AS NECESSARY
  3. CARVEDILOL [Concomitant]
     Active Substance: CARVEDILOL
  4. OMEPRAZOLE [Concomitant]
     Active Substance: OMEPRAZOLE
  5. POLYETHYLENE GLYCOL [Concomitant]
     Active Substance: POLYETHYLENE GLYCOL
  6. AMLODIPINE [Concomitant]
     Active Substance: AMLODIPINE BESYLATE
  7. GABAPENTIN [Concomitant]
     Active Substance: GABAPENTIN
  8. PROCHLORPERAZINE [Concomitant]
     Active Substance: PROCHLORPERAZINE
     Dosage: AS NEEDED ; AS NECESSARY
  9. SEVELAMER [Concomitant]
     Active Substance: SEVELAMER
     Dosage: 800 MG WITH MEALS
  10. HYDROXYCHLOROQUINE [Concomitant]
     Active Substance: HYDROXYCHLOROQUINE
  11. PANTOPRAZOLE [Concomitant]
     Active Substance: PANTOPRAZOLE
  12. LEVOTHYROXINE [Concomitant]
     Active Substance: LEVOTHYROXINE\LEVOTHYROXINE SODIUM
  13. ACETAMINOPHEN [Suspect]
     Active Substance: ACETAMINOPHEN
     Dosage: 15-300 MG AS NEEDED
  14. ATORVASTATIN [Concomitant]
     Active Substance: ATORVASTATIN
  15. POTASSIUM CHLORIDE [Concomitant]
     Active Substance: POTASSIUM CHLORIDE
     Dosage: AS NEEDED ; AS NECESSARY
  16. APIXABAN [Concomitant]
     Active Substance: APIXABAN
  17. ASPIRIN [Concomitant]
     Active Substance: ASPIRIN
  18. ASPIRIN [Concomitant]
     Active Substance: ASPIRIN
  19. AMPICILLIN [Concomitant]
     Active Substance: AMPICILLIN
     Indication: Enterococcal bacteraemia
  20. CEFEPIME [Concomitant]
     Active Substance: CEFEPIME HYDROCHLORIDE
     Indication: Enterococcal bacteraemia
  21. NOREPINEPHRINE [Concomitant]
     Active Substance: NOREPINEPHRINE\NOREPINEPHRINE BITARTRATE
     Indication: Septic shock
  22. VASOPRESSIN [Concomitant]
     Active Substance: VASOPRESSIN
     Indication: Septic shock

REACTIONS (1)
  - Metabolic acidosis [Recovered/Resolved]
